FAERS Safety Report 7892899 (Version 3)
Quarter: 2013Q3

REPORT INFORMATION
  Report Type: Report from Study
  Country: JP (occurrence: JP)
  Receive Date: 20110411
  Receipt Date: 20130903
  Transmission Date: 20140515
  Serious: Yes (Other)
  Sender: FDA-Public Use
  Company Number: PHHY2009JP42768

PATIENT
  Age: 71 Year
  Sex: Female

DRUGS (11)
  1. AMN107 [Suspect]
     Indication: CHRONIC MYELOID LEUKAEMIA
     Dosage: 400 MG, DAILY
     Route: 048
     Dates: start: 20090411, end: 20090501
  2. AMN107 [Suspect]
     Dosage: 200 MG, DAILY
     Route: 048
     Dates: start: 20100108, end: 20100329
  3. AMN107 [Suspect]
     Dosage: 400MG/DAY FOR 3 DAYS/WEEK
     Route: 048
     Dates: start: 20100330, end: 20101028
  4. AMN107 [Suspect]
     Dosage: 200 MG/DAY ON 4 DAYS/WEEK
     Route: 048
     Dates: start: 20100330, end: 20101028
  5. AMN107 [Suspect]
     Dosage: 400 MG/DAY
     Route: 048
     Dates: start: 20101029, end: 20110103
  6. AMN107 [Suspect]
     Dosage: 600 MG/DAY
     Route: 048
     Dates: start: 20110104
  7. AMN107 [Suspect]
     Dosage: 800 MG/DAY
     Route: 048
     Dates: start: 20110705, end: 20111010
  8. AMN107 [Suspect]
     Dosage: 400 MG/DAY
     Route: 048
     Dates: start: 20111011, end: 20120109
  9. AMN107 [Suspect]
     Dosage: 600 MG/DAY
     Route: 048
     Dates: start: 20120110
  10. FLOMOX [Concomitant]
     Dosage: 300 MG
     Route: 048
     Dates: start: 20090410, end: 20090412
  11. KENALOG [Concomitant]
     Indication: STOMATITIS
     Dosage: UNK UKN, UNK
     Route: 048
     Dates: start: 20090410

REACTIONS (4)
  - Platelet count decreased [Recovering/Resolving]
  - Agranulocytosis [Recovering/Resolving]
  - Hyperbilirubinaemia [Recovered/Resolved]
  - Skin disorder [Unknown]
